FAERS Safety Report 11505977 (Version 1)
Quarter: 2015Q3

REPORT INFORMATION
  Report Type: Spontaneous
  Country: TR (occurrence: None)
  Receive Date: 20150911
  Receipt Date: 20150911
  Transmission Date: 20151125
  Serious: Yes (Other)
  Sender: FDA-Public Use
  Company Number: HRA-CDB20150239

PATIENT
  Age: 33 Year
  Sex: Female

DRUGS (1)
  1. ELLA [Suspect]
     Active Substance: ULIPRISTAL ACETATE
     Indication: CONTRACEPTION

REACTIONS (3)
  - Exposure during pregnancy [None]
  - Abortion spontaneous [None]
  - Pregnancy after post coital contraception [None]
